FAERS Safety Report 21329631 (Version 6)
Quarter: 2023Q1

REPORT INFORMATION
  Report Type: Report from Study
  Country: US (occurrence: US)
  Receive Date: 20220913
  Receipt Date: 20230314
  Transmission Date: 20230418
  Serious: Yes (Other)
  Sender: FDA-Public Use
  Company Number: US-002147023-NVSC2022US201785

PATIENT
  Age: 38 Year
  Sex: Female

DRUGS (1)
  1. KESIMPTA [Suspect]
     Active Substance: OFATUMUMAB
     Indication: Relapsing multiple sclerosis
     Dosage: 20 MG, QMO
     Route: 058
     Dates: start: 20220810

REACTIONS (19)
  - Multiple sclerosis pseudo relapse [Unknown]
  - Kidney infection [Unknown]
  - Influenza like illness [Unknown]
  - Feeling abnormal [Unknown]
  - Fatigue [Not Recovered/Not Resolved]
  - Pyrexia [Unknown]
  - Myalgia [Unknown]
  - Ocular hyperaemia [Recovered/Resolved]
  - Vision blurred [Not Recovered/Not Resolved]
  - Migraine [Unknown]
  - Ulcer [Unknown]
  - Muscular weakness [Unknown]
  - Muscle spasms [Unknown]
  - Respiratory syncytial virus infection [Recovering/Resolving]
  - Urinary tract infection [Unknown]
  - Micturition urgency [Unknown]
  - Burning sensation [Unknown]
  - Pollakiuria [Unknown]
  - Urinary incontinence [Unknown]

NARRATIVE: CASE EVENT DATE: 20220819
